FAERS Safety Report 8812307 (Version 1)
Quarter: 2012Q4

REPORT INFORMATION
  Report Type: 
  Country: US (occurrence: US)
  Receive Date: 20120927
  Receipt Date: 20120927
  Transmission Date: 20130627
  Serious: Yes (Other)
  Sender: FDA-Public Use
  Company Number: US-ASTRAZENECA-2012SE70766

PATIENT
  Age: 77 Year
  Sex: Female

DRUGS (10)
  1. SYMBICORT PMDI [Suspect]
     Indication: ASTHMA
     Dosage: 160/4.5 MCG 2 PUFFS, TWO TIMES A DAY
     Route: 055
     Dates: start: 2005
  2. FLUTICASONE [Concomitant]
     Indication: MULTIPLE ALLERGIES
     Route: 045
  3. LOSARTAN POTASSIUM [Concomitant]
     Indication: HYPERTENSION
     Route: 048
  4. SINGULAR [Concomitant]
     Indication: HYPERTENSION
     Route: 048
  5. SIMVASTATIN [Concomitant]
     Indication: BLOOD CHOLESTEROL
     Route: 048
     Dates: start: 2010
  6. GLUCOSAMINE CHONDROITIN [Concomitant]
     Indication: ARTHROPATHY
     Route: 048
  7. GLUCOSAMINE CHONDROITIN [Concomitant]
     Indication: ARTHROPATHY
     Route: 048
  8. CALCIUM [Concomitant]
     Route: 048
  9. HIGH POTENCY VITAMIN B WITH C [Concomitant]
     Indication: ARTHROPATHY
     Dosage: DAILY
     Route: 048
     Dates: start: 1982
  10. ALLEGRA OTC [Concomitant]
     Indication: MULTIPLE ALLERGIES
     Route: 048

REACTIONS (2)
  - Cataract [Unknown]
  - Hypertension [Unknown]
